FAERS Safety Report 6137036-9 (Version None)
Quarter: 2009Q1

REPORT INFORMATION
  Report Type: 
  Country: None (occurrence: None)
  Receive Date: 20090330
  Receipt Date: 20090319
  Transmission Date: 20090719
  Serious: Yes (Hospitalization)
  Sender: FDA-Public Use
  Company Number: US-JNJFOC-20090305549

PATIENT
  Sex: Female
  Weight: 61.24 kg

DRUGS (2)
  1. REMICADE [Suspect]
     Indication: CROHN'S DISEASE
     Dosage: WEEK 0, 2, AND 6
     Route: 042
  2. XANAX [Concomitant]
     Indication: ANXIETY

REACTIONS (4)
  - ANXIETY [None]
  - EAR INFECTION [None]
  - HYPERSENSITIVITY [None]
  - OVERDOSE [None]
